FAERS Safety Report 4592424-7 (Version None)
Quarter: 2005Q1

REPORT INFORMATION
  Report Type: 
  Country: None (occurrence: None)
  Receive Date: 20050228
  Receipt Date: 20050121
  Transmission Date: 20050727
  Serious: Yes (Hospitalization)
  Sender: FDA-Public Use
  Company Number: US-BRISTOL-MYERS SQUIBB COMPANY-12834636

PATIENT
  Age: 70 Year
  Sex: Male

DRUGS (3)
  1. ABILIFY [Suspect]
     Indication: DELUSION
     Dosage: INITIATED AT 5 MG/DAY, DOSE INCREASED BY 5 MG/WEEK UP TO 30 MG/DAY.
     Dates: start: 20041118
  2. ABILIFY [Suspect]
     Indication: DEPRESSION
     Dosage: INITIATED AT 5 MG/DAY, DOSE INCREASED BY 5 MG/WEEK UP TO 30 MG/DAY.
     Dates: start: 20041118
  3. PAXIL CR [Concomitant]

REACTIONS (1)
  - RENAL FAILURE ACUTE [None]
